APPROVED DRUG PRODUCT: KHEDEZLA
Active Ingredient: DESVENLAFAXINE
Strength: 50MG
Dosage Form/Route: TABLET, EXTENDED RELEASE;ORAL
Application: N204683 | Product #001
Applicant: OSMOTICA PHARMACEUTICAL CORP
Approved: Jul 10, 2013 | RLD: No | RS: No | Type: DISCN